FAERS Safety Report 7648610-2 (Version None)
Quarter: 2011Q3

REPORT INFORMATION
  Report Type: 
  Country: None (occurrence: None)
  Receive Date: 20110801
  Receipt Date: 20110719
  Transmission Date: 20111222
  Serious: No
  Sender: FDA-Public Use
  Company Number: PHHY2011US33935

PATIENT
  Sex: Female
  Weight: 61.224 kg

DRUGS (10)
  1. XANAX [Concomitant]
     Dosage: 0.25 MG, UNK
  2. URELLE [Concomitant]
  3. TASIGNA [Suspect]
     Dosage: 300 MG, BID
     Route: 048
  4. LOVAZA [Concomitant]
     Dosage: 1000 MG, UNK
  5. LIPITOR [Concomitant]
     Dosage: 10 MG, UNK
  6. VITAMIN D [Concomitant]
     Dosage: 400 U, UNK
  7. CALCIUM ACETATE [Concomitant]
     Dosage: 500 MG, UNK
  8. COUMADIN [Concomitant]
     Dosage: 1 MG, UNK
  9. LEVOTHYROXINE SODIUM [Concomitant]
     Dosage: 25 UG, UNK
  10. PROZAC [Concomitant]
     Dosage: 10 MG, UNK

REACTIONS (5)
  - VISUAL IMPAIRMENT [None]
  - RASH [None]
  - FATIGUE [None]
  - NERVOUS SYSTEM DISORDER [None]
  - CHILLS [None]
